FAERS Safety Report 6825261-0 (Version None)
Quarter: 2010Q3

REPORT INFORMATION
  Report Type: 
  Country: None (occurrence: None)
  Receive Date: 20100708
  Receipt Date: 20070104
  Transmission Date: 20110219
  Serious: No
  Sender: FDA-Public Use
  Company Number: US-PFIZER INC-2007002479

PATIENT
  Sex: Female
  Weight: 52.62 kg

DRUGS (9)
  1. CHANTIX [Suspect]
     Indication: SMOKING CESSATION THERAPY
     Dates: start: 20070101
  2. PLAVIX [Concomitant]
     Indication: MYOCARDIAL INFARCTION
  3. PLAQUENIL [Concomitant]
     Indication: ARTHRITIS
  4. ACETYLSALICYLIC ACID [Concomitant]
     Indication: MYOCARDIAL INFARCTION
  5. LORTAB [Concomitant]
  6. KLONOPIN [Concomitant]
     Indication: NERVOUSNESS
  7. CALTRATE + D [Concomitant]
  8. NIACIN [Concomitant]
  9. FISH OIL [Concomitant]

REACTIONS (5)
  - DRY MOUTH [None]
  - DYSPHAGIA [None]
  - ORAL DISORDER [None]
  - ORAL PAIN [None]
  - TOOTHACHE [None]
